FAERS Safety Report 8771175 (Version 2)
Quarter: 2013Q3

REPORT INFORMATION
  Report Type: Report from Study
  Country: JP (occurrence: JP)
  Receive Date: 20120905
  Receipt Date: 20130904
  Transmission Date: 20140515
  Serious: Yes (Other)
  Sender: FDA-Public Use
  Company Number: JP-VERTEX PHARMACEUTICAL INC.-AE-2012-010798

PATIENT
  Age: 61 Year
  Sex: Female

DRUGS (11)
  1. VX-950 (TELAPREVIR) [Suspect]
     Indication: CHRONIC HEPATITIS C
     Dosage: 1500 MG, QD
     Route: 048
     Dates: start: 20120514, end: 20120806
  2. RIBAVIRIN [Suspect]
     Indication: HEPATITIS C
     Dosage: 400 MG, QD
     Route: 048
     Dates: start: 20120514, end: 20120702
  3. RIBAVIRIN [Suspect]
     Dosage: 200 MG, QD
     Route: 048
     Dates: start: 20120703, end: 20120813
  4. RIBAVIRIN [Suspect]
     Dosage: 400 MG, QD
     Route: 048
     Dates: start: 20120814
  5. PEGINTERFERON ALFA-2B [Suspect]
     Indication: HEPATITIS C
     Dosage: 1.5 ?G/KG, QW
     Route: 058
     Dates: start: 20120514, end: 20120529
  6. PEGINTERFERON ALFA-2B [Suspect]
     Dosage: 1.1 ?G/KG, QW
     Route: 058
     Dates: start: 20120605, end: 20120625
  7. PEGINTERFERON ALFA-2B [Suspect]
     Dosage: 1.5 ?G/KG, QW
     Route: 058
     Dates: start: 20120626
  8. NOVORAPID [Concomitant]
     Dosage: 15 DF, QD
     Route: 058
  9. SEIBULE [Concomitant]
     Dosage: 100 MG, QD
     Route: 048
     Dates: end: 20120515
  10. URSO [Concomitant]
     Dosage: 600 MG, QD
     Route: 048
  11. ALDACTONE A [Concomitant]
     Dosage: 25 MG, QD
     Route: 048
     Dates: start: 20120703

REACTIONS (1)
  - Neutropenia [Recovered/Resolved]
